FAERS Safety Report 18671191 (Version 1)
Quarter: 2020Q4

REPORT INFORMATION
  Report Type: Spontaneous
  Country: BR (occurrence: BR)
  Receive Date: 20201228
  Receipt Date: 20201228
  Transmission Date: 20210114
  Serious: Yes (Life-Threatening, Hospitalization)
  Sender: FDA-Public Use
  Company Number: BR-TEVA-2020-BR-1862990

PATIENT
  Age: 55 Year
  Sex: Male

DRUGS (15)
  1. ARSENIC TRIOXIDE. [Suspect]
     Active Substance: ARSENIC TRIOXIDE
     Indication: ACUTE PROMYELOCYTIC LEUKAEMIA
     Dosage: 15 MG EV MID (5 DAYS PER WEEK FOR 4 WEEKS, 4 BLOCKS).
     Route: 065
  2. AMIODARONE [Suspect]
     Active Substance: AMIODARONE
     Indication: ATRIAL FLUTTER
     Dosage: 200 MG THRICE DAILY
     Route: 065
  3. CAPTOPRIL. [Concomitant]
     Active Substance: CAPTOPRIL
     Indication: CARDIOTOXICITY
  4. CARVEDILOL. [Concomitant]
     Active Substance: CARVEDILOL
     Indication: CARDIOTOXICITY
  5. TRANSRETINOIC ACID [Concomitant]
     Indication: ACUTE PROMYELOCYTIC LEUKAEMIA
     Dosage: 45 MG/M2 DAILY; INDUCTION THERAPY; 45 MG/M2/DAY FOR 30 DAYS
     Route: 065
  6. SPIRONOLACTONE. [Concomitant]
     Active Substance: SPIRONOLACTONE
     Indication: CARDIOTOXICITY
  7. EDOXABANA [Concomitant]
     Indication: ANTICOAGULANT THERAPY
     Route: 065
  8. CARVEDILOL. [Concomitant]
     Active Substance: CARVEDILOL
     Indication: CARDIAC FAILURE ACUTE
     Route: 065
  9. PREDNISONE. [Concomitant]
     Active Substance: PREDNISONE
     Indication: PROPHYLAXIS
     Dosage: 80 MILLIGRAM DAILY;
     Route: 065
  10. DOBUTAMINE [Concomitant]
     Active Substance: DOBUTAMINE HYDROCHLORIDE
     Indication: CARDIOTOXICITY
  11. DOBUTAMINE [Concomitant]
     Active Substance: DOBUTAMINE HYDROCHLORIDE
     Indication: CARDIAC FAILURE ACUTE
     Route: 065
  12. CAPTOPRIL. [Concomitant]
     Active Substance: CAPTOPRIL
     Indication: CARDIAC FAILURE ACUTE
     Route: 065
  13. SPIRONOLACTONE. [Concomitant]
     Active Substance: SPIRONOLACTONE
     Indication: CARDIAC FAILURE ACUTE
     Route: 065
  14. IDARUBICIN [Suspect]
     Active Substance: IDARUBICIN
     Indication: ACUTE PROMYELOCYTIC LEUKAEMIA
     Dosage: INDUCTION THERAPY; IDARUBICIN ON DAYS- D2, D4, D6, D8
     Route: 065
  15. TRANSRETINOIC ACID [Concomitant]
     Dosage: 100 MILLIGRAM DAILY; CONSOLIDATION REGIME; 50 MG VO BID (15 DAYS, 7 BLOCKS)
     Route: 065

REACTIONS (6)
  - Cardiac failure acute [Recovering/Resolving]
  - Electrocardiogram QT prolonged [Recovering/Resolving]
  - Arrhythmia supraventricular [Recovered/Resolved]
  - Atrial flutter [Recovered/Resolved]
  - Cardiotoxicity [Recovering/Resolving]
  - Mitral valve incompetence [Recovering/Resolving]
